FAERS Safety Report 4941177-9 (Version None)
Quarter: 2006Q1

REPORT INFORMATION
  Report Type: 
  Country: None (occurrence: None)
  Receive Date: 20060308
  Receipt Date: 20060221
  Transmission Date: 20060701
  Serious: Yes (Death)
  Sender: FDA-Public Use
  Company Number: 2006-0009220

PATIENT
  Age: 38 Year
  Sex: Male
  Weight: 45.6 kg

DRUGS (9)
  1. EMTRICITABINE/TENOFOVIR DISOPROXIL FUMARATE [Suspect]
     Indication: HIV INFECTION
     Dosage: 1 DOSAGE FORMS, 1 IN 1 D, ORAL
     Route: 048
     Dates: start: 20050830, end: 20060205
  2. SUSTIVA [Concomitant]
  3. DIFLUCAN [Concomitant]
  4. PENTACARINAT [Concomitant]
  5. NEUPOGEN [Concomitant]
  6. MYCOBUTIN [Concomitant]
  7. ALLOPURINOL [Concomitant]
  8. KLACID (CLARITHROMYCIN) [Concomitant]
  9. CYCLOPHOSPHAMIDE DOXORUBICIN (CYCLOPHOSPHAMID W/DOXORUBICIN) [Concomitant]

REACTIONS (11)
  - BLOOD CALCIUM DECREASED [None]
  - BLOOD CHLORIDE INCREASED [None]
  - BLOOD POTASSIUM DECREASED [None]
  - BLOOD SODIUM INCREASED [None]
  - BLOOD UREA INCREASED [None]
  - BLOOD URIC ACID DECREASED [None]
  - COMA HEPATIC [None]
  - HAEMOGLOBIN DECREASED [None]
  - KAPOSI'S SARCOMA [None]
  - NEUTROPHIL PERCENTAGE DECREASED [None]
  - NON-HODGKIN'S LYMPHOMA [None]
